FAERS Safety Report 5238783-3 (Version None)
Quarter: 2007Q1

REPORT INFORMATION
  Report Type: 
  Country: None (occurrence: None)
  Receive Date: 20061208
  Receipt Date: 20050307
  Transmission Date: 20070707
  Serious: Yes (Other)
  Sender: FDA-Public Use
  Company Number: 2005UW03652

PATIENT
  Age: 85 Year
  Sex: Female

DRUGS (3)
  1. CRESTOR [Suspect]
     Dosage: 10 MG PO
     Route: 048
     Dates: start: 20041210
  2. NEXIUM [Suspect]
     Dosage: 20 MG PO
     Route: 048
  3. TOPROL-XL [Suspect]
     Dosage: 50 MG PO
     Route: 048

REACTIONS (1)
  - CONVULSION [None]
